FAERS Safety Report 4737064-1 (Version None)
Quarter: 2005Q3

REPORT INFORMATION
  Report Type: 
  Country: None (occurrence: None)
  Receive Date: 20050808
  Receipt Date: 20050614
  Transmission Date: 20060218
  Serious: Yes (Other)
  Sender: FDA-Public Use
  Company Number: PHEH2005US06758

PATIENT
  Age: 71 Year
  Sex: Female

DRUGS (7)
  1. AREDIA [Suspect]
     Indication: MULTIPLE MYELOMA
     Dates: start: 20010301, end: 20020201
  2. ZOMETA [Suspect]
     Indication: MULTIPLE MYELOMA
     Dosage: 4 MG, QMO
     Route: 042
     Dates: start: 20031101, end: 20040101
  3. ZOMETA [Suspect]
     Dosage: 4 MG, QMO
     Dates: start: 20040301, end: 20040501
  4. ZOMETA [Suspect]
     Dosage: 4 MG, QMO
     Dates: start: 20041001, end: 20041101
  5. ZOMETA [Suspect]
     Dosage: 4 MG, UNK
     Dates: start: 20050518, end: 20050501
  6. THALIDOMIDE [Concomitant]
  7. PREDNISONE [Concomitant]

REACTIONS (2)
  - ASEPTIC NECROSIS BONE [None]
  - PAIN IN JAW [None]
